FAERS Safety Report 14848166 (Version 2)
Quarter: 2019Q1

REPORT INFORMATION
  Report Type: Report from Study
  Country: CN (occurrence: CN)
  Receive Date: 20180504
  Receipt Date: 20190306
  Transmission Date: 20190417
  Serious: Yes (Hospitalization)
  Sender: FDA-Public Use
  Company Number: CN-ASTRAZENECA-2018SE24509

PATIENT
  Age: 24136 Day
  Sex: Male

DRUGS (6)
  1. CRESTOR [Suspect]
     Active Substance: ROSUVASTATIN CALCIUM
     Indication: ARTERIOSCLEROSIS
     Route: 048
     Dates: start: 20180201, end: 20181106
  2. TRADITIONAL CHINESE MEDICINE NOS [Concomitant]
     Active Substance: HERBALS
     Indication: BACK PAIN
     Route: 048
  3. TRADITIONAL CHINESE MEDICINE NOS [Concomitant]
     Active Substance: HERBALS
     Indication: OROPHARYNGEAL PAIN
     Route: 048
  4. CRESTOR [Suspect]
     Active Substance: ROSUVASTATIN CALCIUM
     Indication: ARTERIOSCLEROSIS
     Route: 048
     Dates: start: 20170318, end: 20171208
  5. TRADITIONAL CHINESE MEDICINE NOS [Concomitant]
     Active Substance: HERBALS
     Indication: RHEUMATOID ARTHRITIS
     Route: 061
  6. CRESTOR [Suspect]
     Active Substance: ROSUVASTATIN CALCIUM
     Indication: ARTERIOSCLEROSIS
     Route: 048
     Dates: start: 20161108, end: 20170316

REACTIONS (1)
  - Hypertension [Recovered/Resolved]

NARRATIVE: CASE EVENT DATE: 20171209
